FAERS Safety Report 10211105 (Version 1)
Quarter: 2014Q2

REPORT INFORMATION
  Report Type: Spontaneous
  Country: US (occurrence: None)
  Receive Date: 20140530
  Receipt Date: 20140530
  Transmission Date: 20141212
  Serious: No
  Sender: FDA-Public Use
  Company Number: None

PATIENT
  Age: 57 Year
  Sex: Male
  Weight: 158.76 kg

DRUGS (7)
  1. TOPIRAMATE [Suspect]
     Indication: ANALGESIC THERAPY
     Dosage: 25 MG, OLC PILL, BEDTIME, MOUTH
     Route: 048
     Dates: start: 201308, end: 201308
  2. HYDROCHLOROTHIAZIDE [Concomitant]
  3. OMEPRAZOLE [Concomitant]
  4. CHOLECALAFEROL [Concomitant]
  5. MELOXICAN [Concomitant]
  6. POTASSIUM [Concomitant]
  7. CYDOBENSAPRINE [Concomitant]

REACTIONS (7)
  - Feeling abnormal [None]
  - Impaired driving ability [None]
  - Eye pain [None]
  - Memory impairment [None]
  - Memory impairment [None]
  - Poisoning [None]
  - Drug ineffective [None]
